FAERS Safety Report 13448049 (Version 2)
Quarter: 2017Q2

REPORT INFORMATION
  Report Type: Spontaneous
  Country: CN (occurrence: CN)
  Receive Date: 20170417
  Receipt Date: 20170504
  Transmission Date: 20170830
  Serious: Yes (Life-Threatening, Disabling, Other)
  Sender: FDA-Public Use
  Company Number: CN-NAPPMUNDI-GBR-2017-0044647

PATIENT
  Age: 77 Year
  Sex: Male
  Weight: 59.8 kg

DRUGS (9)
  1. BONE MELON EXTRACT [Concomitant]
  2. CEFUROXIME. [Concomitant]
     Active Substance: CEFUROXIME
     Indication: INFECTION PROPHYLAXIS
     Dosage: 1.5 G, BID
     Route: 041
  3. PARECOXIB SODIUM. [Concomitant]
     Active Substance: PARECOXIB SODIUM
     Indication: PAIN
     Dosage: 40 MG, DAILY
     Route: 042
  4. GUGUA [Concomitant]
     Dosage: 25 MG, DAILY
     Route: 041
  5. GRANISETRON [Concomitant]
     Active Substance: GRANISETRON
     Indication: PROPHYLAXIS OF NAUSEA AND VOMITING
     Dosage: 6 MG, UNK
     Route: 041
  6. OMEPRAZOLE. [Concomitant]
     Active Substance: OMEPRAZOLE
     Indication: PROPHYLAXIS
     Dosage: 40 MG, DAILY
     Route: 041
  7. CELECOXIB. [Concomitant]
     Active Substance: CELECOXIB
     Dosage: 200 MG, BID
     Route: 048
  8. NORSPAN [Suspect]
     Active Substance: BUPRENORPHINE
     Indication: ANALGESIC THERAPY
     Dosage: 10 MG, Q1H
     Route: 062
     Dates: start: 20170401, end: 20170403
  9. XUESHUANTONG [Concomitant]
     Active Substance: HERBALS
     Dosage: 0.45 G, DAILY
     Route: 041

REACTIONS (8)
  - Respiratory depression [Unknown]
  - Miosis [Unknown]
  - Overdose [Unknown]
  - Heart rate increased [Unknown]
  - Flushing [Unknown]
  - Blood pressure decreased [Unknown]
  - Somnolence [Unknown]
  - Oliguria [Unknown]

NARRATIVE: CASE EVENT DATE: 20170402
